FAERS Safety Report 25928644 (Version 2)
Quarter: 2025Q4

REPORT INFORMATION
  Report Type: Report from Study
  Country: GB (occurrence: GB)
  Receive Date: 20251016
  Receipt Date: 20251218
  Transmission Date: 20260118
  Serious: Yes (Other)
  Sender: NOVARTIS
  Company Number: GB-002147023-NVSC2025GB158972

PATIENT
  Sex: Female

DRUGS (1)
  1. COSENTYX [Suspect]
     Active Substance: SECUKINUMAB
     Indication: Hidradenitis
     Dosage: 300 MG
     Route: 065

REACTIONS (7)
  - Lower respiratory tract infection [Unknown]
  - Hidradenitis [Not Recovered/Not Resolved]
  - Discharge [Unknown]
  - Cyst rupture [Unknown]
  - Condition aggravated [Not Recovered/Not Resolved]
  - Malaise [Unknown]
  - Therapeutic response shortened [Not Recovered/Not Resolved]
